FAERS Safety Report 17107817 (Version 2)
Quarter: 2020Q1

REPORT INFORMATION
  Report Type: Spontaneous
  Country: FR (occurrence: FR)
  Receive Date: 20191204
  Receipt Date: 20200211
  Transmission Date: 20200409
  Serious: Yes (Hospitalization, Other)
  Sender: FDA-Public Use
  Company Number: FR-TEVA-2019-FR-1146954

PATIENT
  Age: 41 Year
  Sex: Male
  Weight: 80 kg

DRUGS (2)
  1. COPAXONE [Suspect]
     Active Substance: GLATIRAMER ACETATE
     Indication: RELAPSING-REMITTING MULTIPLE SCLEROSIS
     Route: 058
     Dates: start: 201901, end: 20191123
  2. UVEDOSE [Concomitant]
     Active Substance: CHOLECALCIFEROL
     Route: 048
     Dates: start: 2017

REACTIONS (6)
  - Angioedema [Recovered/Resolved]
  - Anaphylactic shock [Unknown]
  - Chest pain [Unknown]
  - Dyspnoea [Unknown]
  - Urticaria [Unknown]
  - Laryngeal dyspnoea [Unknown]

NARRATIVE: CASE EVENT DATE: 20191122
